FAERS Safety Report 8025631-1 (Version None)
Quarter: 2012Q1

REPORT INFORMATION
  Report Type: 
  Country: None (occurrence: None)
  Receive Date: 20120105
  Receipt Date: 20120103
  Transmission Date: 20120608
  Serious: No
  Sender: FDA-Public Use
  Company Number: US-BAYER-2012-001213

PATIENT
  Sex: Male

DRUGS (1)
  1. ALEVE (CAPLET) [Suspect]
     Indication: MYALGIA
     Dosage: UNK
     Route: 048
     Dates: start: 20120102

REACTIONS (1)
  - NO ADVERSE EVENT [None]
